FAERS Safety Report 6703074-8 (Version None)
Quarter: 2010Q2

REPORT INFORMATION
  Report Type: 
  Country: None (occurrence: None)
  Receive Date: 20100427
  Receipt Date: 20100423
  Transmission Date: 20101027
  Serious: Yes (Death, Other)
  Sender: FDA-Public Use
  Company Number: 2010SP016211

PATIENT
  Age: 53 Year
  Sex: Female
  Weight: 61 kg

DRUGS (3)
  1. MARVELON 28        (DESOGESTREL [Suspect]
     Indication: MENSTRUATION IRREGULAR
     Dosage: 1 DF;QD;PO 0.5DF;QD;PO
     Route: 048
     Dates: start: 20070727, end: 20070804
  2. MARVELON 28        (DESOGESTREL [Suspect]
     Indication: MENSTRUATION IRREGULAR
     Dosage: 1 DF;QD;PO 0.5DF;QD;PO
     Route: 048
     Dates: start: 20080101
  3. MARVELON 28        (DESOGESTREL [Suspect]
     Indication: MENSTRUATION IRREGULAR
     Dosage: 1 DF;QD;PO 0.5DF;QD;PO
     Route: 048
     Dates: start: 20080606

REACTIONS (2)
  - PULMONARY EMBOLISM [None]
  - VENOUS THROMBOSIS LIMB [None]
